FAERS Safety Report 15607260 (Version 1)
Quarter: 2018Q4

REPORT INFORMATION
  Report Type: Spontaneous
  Country: US (occurrence: US)
  Receive Date: 20181107
  Receipt Date: 20181107
  Transmission Date: 20190205
  Serious: No
  Sender: FDA-Public Use
  Company Number: None

PATIENT
  Age: 61 Year

DRUGS (3)
  1. MYCOPHENOLATE MOFETIL CAP 250MG [Suspect]
     Active Substance: MYCOPHENOLATE MOFETIL
     Indication: RENAL TRANSPLANT
     Dates: start: 201704
  2. TACROLIMUS 0.5MG CAP [Suspect]
     Active Substance: TACROLIMUS
  3. ZORTRESS [Suspect]
     Active Substance: EVEROLIMUS

REACTIONS (2)
  - Stomatitis [None]
  - Tongue ulceration [None]

NARRATIVE: CASE EVENT DATE: 20181105
